FAERS Safety Report 6994113-8 (Version None)
Quarter: 2010Q3

REPORT INFORMATION
  Report Type: 
  Country: None (occurrence: None)
  Receive Date: 20100917
  Receipt Date: 20100604
  Transmission Date: 20110219
  Serious: No
  Sender: FDA-Public Use
  Company Number: US-ASTRAZENECA-2010SE26169

PATIENT
  Sex: Male

DRUGS (1)
  1. SEROQUEL [Suspect]
     Dosage: 1 AND HALF TABLETS AT BED TIME
     Route: 048

REACTIONS (2)
  - BACK INJURY [None]
  - ROAD TRAFFIC ACCIDENT [None]
